FAERS Safety Report 6831418-5 (Version None)
Quarter: 2010Q3

REPORT INFORMATION
  Report Type: 
  Country: None (occurrence: None)
  Receive Date: 20100712
  Receipt Date: 20100702
  Transmission Date: 20110219
  Serious: Yes (Other)
  Sender: FDA-Public Use
  Company Number: JP-ABBOTT-10P-087-0648019-00

PATIENT
  Sex: Female

DRUGS (7)
  1. SEVOFLURANE [Suspect]
     Indication: STATUS ASTHMATICUS
     Dosage: 2L/DAY
     Route: 055
     Dates: start: 20100503, end: 20100506
  2. PRIDOL [Concomitant]
     Indication: ANTIINFLAMMATORY THERAPY
     Route: 042
     Dates: start: 20100503
  3. GASTER [Concomitant]
     Indication: GASTROINTESTINAL MUCOSAL DISORDER
     Route: 042
     Dates: start: 20100503
  4. HUMULIN R [Concomitant]
     Indication: ANGIOPATHY
     Route: 042
     Dates: start: 20100503, end: 20100503
  5. FUROSEMIDE [Concomitant]
     Indication: DIURETIC THERAPY
     Route: 042
     Dates: start: 20100503, end: 20100504
  6. AMINOPHYLLINE [Concomitant]
     Indication: BRONCHOSPASM
     Route: 042
     Dates: start: 20100503
  7. PROPOFOL [Concomitant]
     Indication: SEDATION
     Route: 042
     Dates: start: 20100503, end: 20100506

REACTIONS (1)
  - RHABDOMYOLYSIS [None]
